FAERS Safety Report 7000618-6 (Version None)
Quarter: 2010Q3

REPORT INFORMATION
  Report Type: 
  Country: None (occurrence: None)
  Receive Date: 20100920
  Receipt Date: 20100910
  Transmission Date: 20110219
  Serious: Yes (Hospitalization)
  Sender: FDA-Public Use
  Company Number: US-JNJFOC-20100903994

PATIENT
  Sex: Female

DRUGS (3)
  1. DURAGESIC-100 [Suspect]
     Indication: OSTEOARTHRITIS
     Route: 062
  2. DURAGESIC-100 [Suspect]
     Route: 062
  3. PERCODAN-DEMI [Suspect]
     Indication: BREAKTHROUGH PAIN
     Route: 048

REACTIONS (3)
  - HOSPITALISATION [None]
  - HOT FLUSH [None]
  - HYPERHIDROSIS [None]
